FAERS Safety Report 12535381 (Version 1)
Quarter: 2016Q3

REPORT INFORMATION
  Report Type: Spontaneous
  Country: RS (occurrence: RS)
  Receive Date: 20160707
  Receipt Date: 20160707
  Transmission Date: 20161109
  Serious: Yes (Other)
  Sender: FDA-Public Use
  Company Number: RS-SUN PHARMACEUTICAL INDUSTRIES LTD-2016R1-119697

PATIENT

DRUGS (10)
  1. CLOZAPINE. [Suspect]
     Active Substance: CLOZAPINE
     Indication: BORDERLINE PERSONALITY DISORDER
     Dosage: UNK
     Route: 065
  2. MIRTAZAPINE. [Suspect]
     Active Substance: MIRTAZAPINE
     Indication: BORDERLINE PERSONALITY DISORDER
     Dosage: UNK
     Route: 065
  3. CARBAMAZEPINE. [Suspect]
     Active Substance: CARBAMAZEPINE
     Indication: BORDERLINE PERSONALITY DISORDER
     Route: 065
  4. VALPROATE [Suspect]
     Active Substance: VALPROIC ACID
  5. AMITRIPTYLINE [Suspect]
     Active Substance: AMITRIPTYLINE
     Indication: BORDERLINE PERSONALITY DISORDER
     Dosage: UNK
     Route: 065
  6. FLUPHENAZINE [Suspect]
     Active Substance: FLUPHENAZINE
     Indication: BORDERLINE PERSONALITY DISORDER
     Dosage: UNK
     Route: 065
  7. LEVOMEPROMAZINE [Suspect]
     Active Substance: LEVOMEPROMAZINE
     Indication: BORDERLINE PERSONALITY DISORDER
     Dosage: UNK
     Route: 065
  8. SERTRALINE [Suspect]
     Active Substance: SERTRALINE HYDROCHLORIDE
     Indication: BORDERLINE PERSONALITY DISORDER
     Route: 065
  9. MAPROTILINE [Suspect]
     Active Substance: MAPROTILINE
     Indication: BORDERLINE PERSONALITY DISORDER
     Route: 065
  10. RISPERIDONE. [Suspect]
     Active Substance: RISPERIDONE
     Indication: BORDERLINE PERSONALITY DISORDER
     Dosage: UNK
     Route: 065

REACTIONS (1)
  - Therapeutic response decreased [Unknown]
